FAERS Safety Report 9267467 (Version 1)
Quarter: 2013Q2

REPORT INFORMATION
  Report Type: Spontaneous
  Country: US (occurrence: US)
  Receive Date: 20130502
  Receipt Date: 20130502
  Transmission Date: 20140414
  Serious: Yes (Other)
  Sender: FDA-Public Use
  Company Number: US-GLAXOSMITHKLINE-A0833771A

PATIENT
  Sex: Male

DRUGS (1)
  1. AVANDIA [Suspect]
     Indication: DIABETES MELLITUS
     Dosage: 8MG PER DAY
     Route: 048
     Dates: start: 20050207, end: 20080220

REACTIONS (4)
  - Upper limb fracture [Not Recovered/Not Resolved]
  - Ankle fracture [Unknown]
  - Cardiac failure congestive [Unknown]
  - Pain [Unknown]
